FAERS Safety Report 5767977-3 (Version None)
Quarter: 2008Q2

REPORT INFORMATION
  Report Type: 
  Country: None (occurrence: None)
  Receive Date: 20080612
  Receipt Date: 20080605
  Transmission Date: 20081010
  Serious: Yes (Other)
  Sender: FDA-Public Use
  Company Number: US-ASTRAZENECA-2008UW11335

PATIENT
  Age: 57 Year
  Sex: Male
  Weight: 67.1 kg

DRUGS (16)
  1. CRESTOR [Suspect]
     Indication: BLOOD CHOLESTEROL
     Route: 048
     Dates: start: 20071001
  2. CRESTOR [Suspect]
     Indication: BLOOD TRIGLYCERIDES INCREASED
     Route: 048
     Dates: start: 20071001
  3. TRICOR [Concomitant]
  4. ATENOLOL [Concomitant]
  5. RAMIPRIL [Concomitant]
  6. GLUCOPHAGE [Concomitant]
  7. ASPIRIN [Concomitant]
     Route: 048
  8. OXYCONTIN [Concomitant]
     Route: 048
  9. OXYCODONE HCL [Concomitant]
  10. CLONAZEPAM [Concomitant]
  11. DIAZEPAM [Concomitant]
  12. PERCOCET [Concomitant]
     Dosage: 10/325 2 TABS
     Route: 048
  13. ALPRAZOLAM [Concomitant]
  14. NEXIUM [Concomitant]
  15. LIPITOR [Concomitant]
  16. LUNESTA [Concomitant]
     Indication: INSOMNIA

REACTIONS (3)
  - ARTHRITIS [None]
  - MYALGIA [None]
  - SLEEP DISORDER [None]
